FAERS Safety Report 9716898 (Version 1)
Quarter: 2013Q4

REPORT INFORMATION
  Report Type: Spontaneous
  Country: US (occurrence: None)
  Receive Date: 20131125
  Receipt Date: 20131125
  Transmission Date: 20140711
  Serious: Yes (Other)
  Sender: FDA-Public Use
  Company Number: AUR-APL-2013-09833

PATIENT
  Age: 27 Year
  Sex: Female

DRUGS (30)
  1. ONDANSETRON [Suspect]
     Indication: IMPAIRED GASTRIC EMPTYING
     Route: 048
  2. ONDANSETRON [Suspect]
     Indication: NAUSEA
     Route: 048
  3. ONDANSETRON [Suspect]
     Indication: VOMITING
     Route: 048
  4. METOCLOPRAMIDE HCL [Suspect]
     Indication: IMPAIRED GASTRIC EMPTYING
     Route: 048
  5. METOCLOPRAMIDE HCL [Suspect]
     Indication: NAUSEA
     Route: 048
  6. METOCLOPRAMIDE HCL [Suspect]
     Indication: VOMITING
     Route: 048
  7. PREGABALIN [Suspect]
     Indication: IMPAIRED GASTRIC EMPTYING
     Route: 048
  8. PREGABALIN [Suspect]
     Indication: NAUSEA
     Route: 048
  9. PREGABALIN [Suspect]
     Indication: VOMITING
     Route: 048
  10. PROMETHAZINE [Suspect]
     Indication: IMPAIRED GASTRIC EMPTYING
     Route: 048
  11. PROMETHAZINE [Suspect]
     Indication: NAUSEA
     Route: 048
  12. PROMETHAZINE [Suspect]
     Indication: VOMITING
     Route: 048
  13. LORAZEPAM [Suspect]
     Indication: IMPAIRED GASTRIC EMPTYING
     Route: 048
  14. LORAZEPAM [Suspect]
     Indication: NAUSEA
     Route: 048
  15. LORAZEPAM [Suspect]
     Indication: VOMITING
     Route: 048
  16. DOMPERIDONE [Suspect]
     Indication: IMPAIRED GASTRIC EMPTYING
     Route: 048
  17. DOMPERIDONE [Suspect]
     Indication: NAUSEA
     Route: 048
  18. DOMPERIDONE [Suspect]
     Indication: VOMITING
     Route: 048
  19. PROCHLORPERAZINE [Suspect]
     Indication: IMPAIRED GASTRIC EMPTYING
     Route: 048
  20. PROCHLORPERAZINE [Suspect]
     Indication: NAUSEA
     Route: 048
  21. PROCHLORPERAZINE [Suspect]
     Indication: VOMITING
     Route: 048
  22. NORTRIPTYLINE [Suspect]
     Indication: IMPAIRED GASTRIC EMPTYING
     Route: 048
  23. NORTRIPTYLINE [Suspect]
     Indication: NAUSEA
     Route: 048
  24. NORTRIPTYLINE [Suspect]
     Indication: VOMITING
     Route: 048
  25. GRANISETRON [Suspect]
     Indication: IMPAIRED GASTRIC EMPTYING
     Route: 048
  26. GRANISETRON [Suspect]
     Indication: NAUSEA
     Route: 048
  27. GRANISETRON [Suspect]
     Indication: VOMITING
     Route: 048
  28. DIPHENHYDRAMINE [Suspect]
     Indication: IMPAIRED GASTRIC EMPTYING
     Route: 048
  29. DIPHENHYDRAMINE [Suspect]
     Indication: NAUSEA
     Route: 048
  30. DIPHENHYDRAMINE [Suspect]
     Indication: VOMITING
     Route: 048

REACTIONS (1)
  - Drug ineffective [None]
